FAERS Safety Report 24107102 (Version 1)
Quarter: 2024Q3

REPORT INFORMATION
  Report Type: Spontaneous
  Country: US (occurrence: US)
  Receive Date: 20240718
  Receipt Date: 20240718
  Transmission Date: 20241017
  Serious: Yes (Other)
  Sender: ACCORD
  Company Number: US-Accord-396565

PATIENT
  Sex: Female

DRUGS (1)
  1. LETROZOLE [Suspect]
     Active Substance: LETROZOLE
     Indication: Bone cancer
     Dosage: ONCE A DAY
     Route: 048
     Dates: start: 202310

REACTIONS (11)
  - Dyspnoea [Unknown]
  - Pain [Unknown]
  - Trigger finger [Unknown]
  - Dizziness [Unknown]
  - Nervousness [Unknown]
  - Feeling jittery [Unknown]
  - Insomnia [Unknown]
  - Pain in jaw [Unknown]
  - Chest pain [Unknown]
  - Oesophageal spasm [Unknown]
  - Off label use [Unknown]
